FAERS Safety Report 7264753-X (Version None)
Quarter: 2011Q1

REPORT INFORMATION
  Report Type: 
  Country: None (occurrence: None)
  Receive Date: 20110131
  Receipt Date: 20110121
  Transmission Date: 20110831
  Serious: Yes (Disabling)
  Sender: FDA-Public Use
  Company Number: US-US-EMD SERONO, INC.-7001046

PATIENT
  Sex: Female

DRUGS (3)
  1. UNSPECIFIED HIGH BLOOD PRESSURE MEDICATION [Concomitant]
     Indication: HYPERTENSION
  2. REBIF [Suspect]
     Indication: MULTIPLE SCLEROSIS
     Route: 058
     Dates: start: 20030804
  3. ADVIL [Concomitant]
     Indication: PREMEDICATION

REACTIONS (2)
  - RELAPSING-REMITTING MULTIPLE SCLEROSIS [None]
  - OEDEMA PERIPHERAL [None]
